FAERS Safety Report 11501790 (Version 1)
Quarter: 2015Q3

REPORT INFORMATION
  Report Type: Report from Study
  Country: JP (occurrence: JP)
  Receive Date: 20150914
  Receipt Date: 20150914
  Transmission Date: 20151125
  Serious: Yes (Hospitalization)
  Sender: FDA-Public Use
  Company Number: JP-ASTRAZENECA-2015SE52086

PATIENT
  Age: 27077 Day
  Sex: Female
  Weight: 34 kg

DRUGS (6)
  1. CALONAL [Concomitant]
     Active Substance: ACETAMINOPHEN
     Indication: HEADACHE
     Route: 048
     Dates: start: 20140422
  2. IRESSA [Suspect]
     Active Substance: GEFITINIB
     Indication: NON-SMALL CELL LUNG CANCER
     Route: 048
     Dates: start: 20150407, end: 20150520
  3. LENDORMIN D [Concomitant]
     Active Substance: BROTIZOLAM
     Indication: INSOMNIA
     Route: 048
  4. RESPLEN [Concomitant]
     Active Substance: EPRAZINONE
     Indication: COUGH
     Dosage: 20-30 MG/DOSE
     Route: 048
  5. VORINOSTAT [Suspect]
     Active Substance: VORINOSTAT
     Indication: NON-SMALL CELL LUNG CANCER
     Dosage: SEVEN CONSECUTIVE DAYS OF ADMINISTRATION FOLLOWED BY A SEVEN-DAY REST
     Route: 065
     Dates: start: 20150407, end: 20150513
  6. HIRUDOID [Concomitant]
     Active Substance: GLYCOSAMINOGLYCANS
     Indication: DRY SKIN
     Dosage: OPTIMAL DOSE AS REQUIRED
     Route: 062

REACTIONS (2)
  - Fall [Recovered/Resolved]
  - Pneumonia [Recovered/Resolved]

NARRATIVE: CASE EVENT DATE: 20150520
